FAERS Safety Report 11575160 (Version 1)
Quarter: 2015Q3

REPORT INFORMATION
  Report Type: Spontaneous
  Country: US (occurrence: US)
  Receive Date: 20150916
  Receipt Date: 20150916
  Transmission Date: 20151125
  Serious: No
  Sender: FDA-Public Use
  Company Number: US-ELI_LILLY_AND_COMPANY-US200911005117

PATIENT
  Age: 55 Year
  Sex: Male

DRUGS (9)
  1. TRIAMTEREN [Concomitant]
     Active Substance: TRIAMTERENE
  2. POTASSIUM [Concomitant]
     Active Substance: POTASSIUM
  3. LASIX [Concomitant]
     Active Substance: FUROSEMIDE
     Dates: start: 20091118
  4. ANALGESICS [Concomitant]
     Active Substance: UNSPECIFIED INGREDIENT
  5. NEXIUM [Concomitant]
     Active Substance: ESOMEPRAZOLE MAGNESIUM
  6. PREDNISONE. [Concomitant]
     Active Substance: PREDNISONE
  7. FORTEO [Suspect]
     Active Substance: TERIPARATIDE
     Indication: OSTEOPOROSIS
     Dates: start: 20091104
  8. SULFA                              /00150702/ [Concomitant]
     Active Substance: UNSPECIFIED INGREDIENT
  9. METHOTREXATE [Concomitant]
     Active Substance: METHOTREXATE

REACTIONS (4)
  - Injection site erythema [Not Recovered/Not Resolved]
  - Oedema peripheral [Not Recovered/Not Resolved]
  - Arthralgia [Not Recovered/Not Resolved]
  - Gait disturbance [Not Recovered/Not Resolved]

NARRATIVE: CASE EVENT DATE: 200911
